FAERS Safety Report 7831862-3 (Version None)
Quarter: 2011Q4

REPORT INFORMATION
  Report Type: 
  Country: None (occurrence: None)
  Receive Date: 20111021
  Receipt Date: 20111012
  Transmission Date: 20120403
  Serious: Yes (Hospitalization, Other)
  Sender: FDA-Public Use
  Company Number: JP-TYCO HEALTHCARE/MALLINCKRODT-T201102017

PATIENT
  Sex: Female
  Weight: 54.4 kg

DRUGS (21)
  1. METHADONE HCL [Suspect]
     Dosage: 20 MG TID
     Route: 048
     Dates: start: 20110511, end: 20110601
  2. KAIBEEL C [Concomitant]
     Indication: CONSTIPATION
     Dosage: 3 TAB/TIME AS NEEDED
     Dates: start: 20110204
  3. RINDERON-VG [Concomitant]
     Dosage: ADEQUATE DOSE
  4. HIRUDOID                           /00723701/ [Concomitant]
     Dosage: ADEQUATE DOSE
  5. METHADONE HCL [Suspect]
     Dosage: 15 MG, TID
     Route: 048
     Dates: start: 20110330, end: 20110510
  6. METHADONE HCL [Suspect]
     Dosage: 25 MG, TID
     Route: 048
     Dates: start: 20111005
  7. ZOLPIDEM [Concomitant]
     Indication: INSOMNIA
     Dosage: 10 MG/TIME AS NEEDED
  8. METHADONE HCL [Suspect]
     Indication: CANCER PAIN
     Dosage: 10 MG, TID
     Route: 048
     Dates: start: 20110202, end: 20110329
  9. SODIUM CHLORIDE [Concomitant]
     Dosage: 100 ML ONCE/SIX WEEKS
  10. HYALEIN [Concomitant]
     Dosage: ADEQUATE DOSE
  11. LOXONIN                            /00890701/ [Concomitant]
     Indication: CANCER PAIN
     Dosage: 60 MG/TIME AS NEEDED
     Dates: start: 20110707
  12. REBAMIPIDE [Concomitant]
     Indication: GASTRITIS PROPHYLAXIS
     Dosage: 100 MG/TIME AS NEEDED
     Dates: start: 20110928
  13. ARTIFICIAL TEARS                   /00445101/ [Concomitant]
     Dosage: ADEQUATE DOSE
     Dates: start: 20110928
  14. OXYCODONE HCL [Concomitant]
     Indication: PAIN
     Dosage: 5 MG, PRN
  15. KETOPROFEN [Concomitant]
     Indication: CANCER PAIN
     Dosage: 1 OR 2 SHEETS/TIME AS NEEDED
  16. METHADONE HCL [Suspect]
     Dosage: 25 MG TID
     Route: 048
     Dates: start: 20110602, end: 20110802
  17. METHADONE HCL [Suspect]
     Dosage: 20 MG TID
     Route: 048
     Dates: start: 20110803, end: 20111004
  18. MAGNESIUM OXIDE [Concomitant]
     Indication: CONSTIPATION
     Dosage: 1 G/TIME AS NEEDED
     Dates: start: 20110204
  19. LOCOID                             /00028605/ [Concomitant]
     Dosage: ADEQUATE DOSE
  20. ZOMETA [Concomitant]
     Dosage: 4 MG ONCE/SIX WEEKS
     Route: 042
  21. HEPARIN NA LOCK [Concomitant]
     Indication: ANTICOAGULANT THERAPY
     Dosage: 10 UNITS/TIME AS NEEDED
     Dates: start: 20110614

REACTIONS (6)
  - METASTASES TO LIVER [None]
  - PAIN [None]
  - SOMNOLENCE [None]
  - HYPOAESTHESIA [None]
  - METASTASES TO BONE [None]
  - DRUG THERAPY CHANGED [None]
